FAERS Safety Report 4855925-X (Version None)
Quarter: 2005Q4

REPORT INFORMATION
  Report Type: 
  Country: None (occurrence: None)
  Receive Date: 20051216
  Receipt Date: 20051207
  Transmission Date: 20060501
  Serious: Yes (Hospitalization)
  Sender: FDA-Public Use
  Company Number: FR-GLAXOSMITHKLINE-B0403009A

PATIENT
  Age: 45 Year
  Sex: Male
  Weight: 71 kg

DRUGS (3)
  1. KIVEXA [Suspect]
     Indication: HIV INFECTION
     Dosage: 1TAB PER DAY
     Route: 048
     Dates: start: 20041027
  2. KALETRA [Suspect]
     Indication: HIV INFECTION
     Dosage: 3TAB TWICE PER DAY
     Route: 048
     Dates: start: 20041027
  3. ANTI-MALARIAL (UNSPECIFIED) [Concomitant]
     Dates: start: 20050929, end: 20051006

REACTIONS (5)
  - ABDOMINAL PAIN [None]
  - LIPASE INCREASED [None]
  - NEUTROPHILIA [None]
  - PANCREATITIS [None]
  - VOMITING [None]
